FAERS Safety Report 8619404-6 (Version None)
Quarter: 2012Q3

REPORT INFORMATION
  Report Type: 
  Country: None (occurrence: None)
  Receive Date: 20120824
  Receipt Date: 20120822
  Transmission Date: 20120928
  Serious: Yes (Other)
  Sender: FDA-Public Use
  Company Number: GB-PFIZER INC-2012205734

PATIENT
  Age: 44 Year
  Sex: Male
  Weight: 76 kg

DRUGS (6)
  1. CHANTIX [Suspect]
     Dosage: 1 MG, 2X/DAY
     Dates: start: 20120701, end: 20120721
  2. CHANTIX [Suspect]
     Indication: SMOKING CESSATION THERAPY
     Dosage: 500 UG, 1X/DAY
     Dates: start: 20120714, end: 20120701
  3. PREDNISOLONE [Concomitant]
     Dosage: UNK
  4. DIFFLAM [Concomitant]
     Dosage: UNK
  5. CHANTIX [Suspect]
     Dosage: 500 UG, 2X/DAY
     Dates: start: 20120701, end: 20120701
  6. DEQUACAINE [Concomitant]
     Dosage: UNK

REACTIONS (2)
  - APHTHOUS STOMATITIS [None]
  - LARYNGEAL ULCERATION [None]
